FAERS Safety Report 5506706-5 (Version None)
Quarter: 2007Q4

REPORT INFORMATION
  Report Type: 
  Country: None (occurrence: None)
  Receive Date: 20071105
  Receipt Date: 20071026
  Transmission Date: 20080405
  Serious: Yes (Death)
  Sender: FDA-Public Use
  Company Number: US-ELI_LILLY_AND_COMPANY-US200710006986

PATIENT
  Age: 35 Year
  Sex: Male

DRUGS (7)
  1. BYETTA [Suspect]
     Dosage: 5 UG, UNKNOWN
     Route: 058
     Dates: start: 20070901
  2. DYAZIDE [Concomitant]
     Dosage: UNK, UNKNOWN
  3. AVANDIA [Concomitant]
     Dosage: UNK, UNKNOWN
  4. ZETIA [Concomitant]
     Dosage: UNK, UNKNOWN
  5. LISINOPRIL [Concomitant]
     Dosage: UNK, UNKNOWN
  6. CADUET [Concomitant]
     Dosage: UNK, UNKNOWN
  7. ASPIRIN [Concomitant]
     Dosage: UNK, UNKNOWN

REACTIONS (2)
  - ELECTROMECHANICAL DISSOCIATION [None]
  - RESPIRATORY DISTRESS [None]
